FAERS Safety Report 13220904 (Version 1)
Quarter: 2017Q1

REPORT INFORMATION
  Report Type: Other
  Country: US (occurrence: US)
  Receive Date: 20170211
  Receipt Date: 20170211
  Transmission Date: 20170428
  Serious: No
  Sender: FDA-Public Use
  Company Number: US-ACORDA-ACO_129853_2016

PATIENT
  Age: 39 Year
  Sex: Male

DRUGS (1)
  1. AMPYRA [Suspect]
     Active Substance: DALFAMPRIDINE
     Indication: PRODUCT USED FOR UNKNOWN INDICATION
     Dosage: UNK
     Route: 065

REACTIONS (7)
  - Tinnitus [Unknown]
  - Dyspnoea [Unknown]
  - Choking [Unknown]
  - Wheelchair user [Unknown]
  - Dysphagia [Unknown]
  - Condition aggravated [Unknown]
  - Dizziness [Unknown]
